FAERS Safety Report 12060701 (Version 1)
Quarter: 2016Q1

REPORT INFORMATION
  Report Type: Spontaneous
  Country: FR (occurrence: FR)
  Receive Date: 20160210
  Receipt Date: 20160210
  Transmission Date: 20160526
  Serious: Yes (Hospitalization)
  Sender: FDA-Public Use
  Company Number: FR-PFIZER INC-2016058557

PATIENT
  Age: 24 Year
  Sex: Female

DRUGS (12)
  1. ZYVOXID [Suspect]
     Active Substance: LINEZOLID
     Indication: STAPHYLOCOCCAL INFECTION
  2. LYRICA [Concomitant]
     Active Substance: PREGABALIN
     Dosage: 50 MG, 4X/DAY
     Route: 048
     Dates: start: 20151202
  3. SODIUM CHLORIDE. [Concomitant]
     Active Substance: SODIUM CHLORIDE
     Indication: FLUID REPLACEMENT
     Dosage: UNK
     Route: 042
     Dates: start: 20151218, end: 20151221
  4. ZELITREX [Concomitant]
     Active Substance: VALACYCLOVIR HYDROCHLORIDE
     Dosage: 500 MG, 2X/DAY
     Route: 048
     Dates: start: 20151217, end: 20151222
  5. KETAMINE [Concomitant]
     Active Substance: KETAMINE
     Dosage: 50 MG / ML AT 1 VIAL DAILY (2 ML PER HOUR)
     Route: 042
     Dates: start: 20151216
  6. SERESTA [Concomitant]
     Active Substance: OXAZEPAM
     Dosage: 10 MG, 1X/DAY
     Route: 048
     Dates: start: 20151218, end: 20151219
  7. ZYVOXID [Suspect]
     Active Substance: LINEZOLID
     Indication: MYOFASCITIS
     Dosage: 600 MG, 2X/DAY
     Route: 048
     Dates: start: 20151218, end: 20151221
  8. PAROXETINE [Concomitant]
     Active Substance: PAROXETINE\PAROXETINE HYDROCHLORIDE
     Dosage: 20 MG, 1X/DAY
     Route: 048
     Dates: start: 20151202
  9. HEPARIN SODIUM. [Suspect]
     Active Substance: HEPARIN SODIUM
     Dosage: 3 ML PER HOUR
     Route: 042
     Dates: start: 20151217, end: 20151222
  10. OXYNORM [Concomitant]
     Active Substance: OXYCODONE HYDROCHLORIDE
     Dosage: 20 MG / 2ML AT ONE INJECTION OF 1 ML PER HOUR
     Route: 042
     Dates: start: 20151216
  11. ACUPAN [Concomitant]
     Active Substance: NEFOPAM HYDROCHLORIDE
     Dosage: 20 MG / 2 ML AT 6 VIALS (2 ML PER HOUR)
     Route: 042
     Dates: start: 20151216
  12. PARACETAMOL [Concomitant]
     Active Substance: ACETAMINOPHEN
     Dosage: 1 G, 3X/DAY
     Route: 042
     Dates: start: 20151216

REACTIONS (1)
  - Hyperkalaemia [Recovered/Resolved]

NARRATIVE: CASE EVENT DATE: 20151220
